FAERS Safety Report 7433271-8 (Version None)
Quarter: 2011Q2

REPORT INFORMATION
  Report Type: 
  Country: None (occurrence: None)
  Receive Date: 20110422
  Receipt Date: 20110415
  Transmission Date: 20111010
  Serious: No
  Sender: FDA-Public Use
  Company Number: US-B.I. PHARMACEUTICALS,INC./RIDGEFIELD-2011-BP-11067BP

PATIENT
  Sex: Male

DRUGS (14)
  1. ACETAMINOPHEN [Concomitant]
     Indication: ARTHRITIS
     Route: 048
  2. ZOCOR [Concomitant]
     Dosage: 100 MG
     Route: 048
  3. METOPROLOL [Concomitant]
     Dosage: 100 MG
     Route: 048
  4. POTASSIUM [Concomitant]
     Dosage: 20 MEQ
     Route: 048
  5. ASPIRIN [Concomitant]
     Route: 048
  6. CLONIDINE [Concomitant]
     Dosage: 4 MG
     Route: 048
  7. DIOVAN [Concomitant]
     Dosage: 125 MG
     Route: 048
  8. COUMADIN [Concomitant]
     Route: 048
     Dates: end: 20110413
  9. VITAMIN TAB [Concomitant]
     Route: 048
  10. NIASPAN [Concomitant]
     Dosage: 500 MG
     Route: 048
  11. QUINAPRIL [Concomitant]
     Route: 048
  12. PRADAXA [Suspect]
     Indication: ATRIAL FIBRILLATION
     Dosage: 300 MG
     Route: 048
     Dates: start: 20110414
  13. VENTOLIN DS [Concomitant]
     Route: 055
  14. AMIDARONE [Concomitant]
     Route: 048

REACTIONS (2)
  - TREMOR [None]
  - CHILLS [None]
